FAERS Safety Report 6238876-8 (Version None)
Quarter: 2009Q2

REPORT INFORMATION
  Report Type: 
  Country: None (occurrence: None)
  Receive Date: 20090617
  Receipt Date: 20090617
  Transmission Date: 20091009
  Serious: Yes (Other)
  Sender: FDA-Public Use
  Company Number: None

PATIENT
  Sex: Female
  Weight: 58.0604 kg

DRUGS (1)
  1. BONIVA [Suspect]
     Indication: OSTEOPENIA
     Dosage: ONE TABLET MONTHY PO
     Route: 048
     Dates: start: 20071110, end: 20090310

REACTIONS (5)
  - ARTHRALGIA [None]
  - BONE PAIN [None]
  - EMOTIONAL DISTRESS [None]
  - PAIN [None]
  - QUALITY OF LIFE DECREASED [None]
